FAERS Safety Report 24816698 (Version 4)
Quarter: 2025Q1

REPORT INFORMATION
  Report Type: Spontaneous
  Country: CH (occurrence: CH)
  Receive Date: 20250107
  Receipt Date: 20250311
  Transmission Date: 20250408
  Serious: Yes (Disabling)
  Sender: BIOMARIN
  Company Number: CH-BIOMARINAP-CH-2024-162933

PATIENT

DRUGS (4)
  1. BRINEURA [Suspect]
     Active Substance: CERLIPONASE ALFA
     Indication: Neuronal ceroid lipofuscinosis
     Dosage: UNK, QOW
     Route: 020
     Dates: start: 20231222, end: 20250131
  2. CLONAZEPAM [Concomitant]
     Active Substance: CLONAZEPAM
     Indication: Seizure
     Dates: start: 20250131
  3. KETAMINE [Concomitant]
     Active Substance: KETAMINE
     Indication: Sedation
     Route: 042
  4. MIDAZOLAM [Concomitant]
     Active Substance: MIDAZOLAM
     Indication: Sedation
     Route: 042

REACTIONS (12)
  - Dementia [Not Recovered/Not Resolved]
  - Epilepsy [Not Recovered/Not Resolved]
  - Petit mal epilepsy [Not Recovered/Not Resolved]
  - Aggression [Not Recovered/Not Resolved]
  - Impulsive behaviour [Not Recovered/Not Resolved]
  - Myoclonus [Not Recovered/Not Resolved]
  - Gait disturbance [Not Recovered/Not Resolved]
  - Agitation [Not Recovered/Not Resolved]
  - Depression [Unknown]
  - Quality of life decreased [Unknown]
  - Disease progression [Unknown]
  - Drug ineffective [Unknown]

NARRATIVE: CASE EVENT DATE: 20241122
